FAERS Safety Report 8731585 (Version 2)
Quarter: 2012Q4

REPORT INFORMATION
  Report Type: Report from Study
  Country: CA (occurrence: CA)
  Receive Date: 20120820
  Receipt Date: 20120907
  Transmission Date: 20130627
  Serious: Yes (Hospitalization, Other)
  Sender: FDA-Public Use
  Company Number: CA-JNJFOC-20120805651

PATIENT
  Sex: Male
  Weight: 71.22 kg

DRUGS (1)
  1. REMICADE [Suspect]
     Indication: COLITIS ULCERATIVE
     Route: 042
     Dates: start: 2008

REACTIONS (3)
  - Crohn^s disease [Not Recovered/Not Resolved]
  - Cystitis [Unknown]
  - Pain [Unknown]
